FAERS Safety Report 18642819 (Version 6)
Quarter: 2021Q1

REPORT INFORMATION
  Report Type: Spontaneous
  Country: US (occurrence: US)
  Receive Date: 20201221
  Receipt Date: 20210128
  Transmission Date: 20210419
  Serious: Yes (Death, Life-Threatening, Hospitalization, Other)
  Sender: FDA-Public Use
  Company Number: US-UNITED THERAPEUTICS-UNT-2020-020004

PATIENT
  Age: 68 Year
  Sex: Female
  Weight: 63.49 kg

DRUGS (5)
  1. AMBRISENTAN [Concomitant]
     Active Substance: AMBRISENTAN
     Indication: PRODUCT USED FOR UNKNOWN INDICATION
     Dosage: UNK
     Route: 065
  2. ELIQUIS [Concomitant]
     Active Substance: APIXABAN
     Indication: PRODUCT USED FOR UNKNOWN INDICATION
     Dosage: UNK
     Route: 065
  3. REMODULIN [Suspect]
     Active Substance: TREPROSTINIL
     Dosage: 0.037 ?G/KG, CONTINUING
     Route: 058
  4. REMODULIN [Suspect]
     Active Substance: TREPROSTINIL
     Indication: PULMONARY ARTERIAL HYPERTENSION
     Dosage: UNK, CONTINUING
     Route: 058
     Dates: start: 20180717
  5. REMODULIN [Suspect]
     Active Substance: TREPROSTINIL
     Dosage: UNK UNK, CONTINUING
     Route: 058
     Dates: end: 202101

REACTIONS (8)
  - Cardiac arrest [Unknown]
  - Hypotension [Unknown]
  - Hypoxia [Unknown]
  - Palpitations [Unknown]
  - Respiratory failure [Fatal]
  - Respiration abnormal [Unknown]
  - Dyspnoea [Unknown]
  - Infusion site erythema [Unknown]

NARRATIVE: CASE EVENT DATE: 20201216
